FAERS Safety Report 8913789 (Version 1)
Quarter: 2012Q4

REPORT INFORMATION
  Report Type: 
  Country: US (occurrence: US)
  Receive Date: 20121119
  Receipt Date: 20121119
  Transmission Date: 20130627
  Serious: No
  Sender: FDA-Public Use
  Company Number: US-009507513-1208USA002424

PATIENT

DRUGS (3)
  1. SINEMET [Suspect]
  2. DECADRON (DEXAMETHASONE) [Concomitant]
  3. REVLIMID [Concomitant]

REACTIONS (2)
  - Neuropathy peripheral [Unknown]
  - Asthenia [Unknown]
